FAERS Safety Report 23948591 (Version 1)
Quarter: 2024Q2

REPORT INFORMATION
  Report Type: Spontaneous
  Country: US (occurrence: US)
  Receive Date: 20240607
  Receipt Date: 20240607
  Transmission Date: 20240715
  Serious: No
  Sender: FDA-Public Use
  Company Number: US-SA-SAC20240603001587

PATIENT
  Sex: Male
  Weight: 74.842 kg

DRUGS (1)
  1. DUPIXENT [Suspect]
     Active Substance: DUPILUMAB
     Dosage: DOSE AND ROUTE PRESCRIBED - 300 MG UNDER THE SKIN FREQUENCY-:EVERY 2 WEEKS
     Route: 058

REACTIONS (1)
  - Rhinorrhoea [Unknown]
